FAERS Safety Report 17712793 (Version 1)
Quarter: 2020Q2

REPORT INFORMATION
  Report Type: Spontaneous
  Country: CR (occurrence: CR)
  Receive Date: 20200427
  Receipt Date: 20200427
  Transmission Date: 20200714
  Serious: Yes (Hospitalization, Other)
  Sender: FDA-Public Use
  Company Number: CR-009507513-2004CRI006995

PATIENT
  Age: 41 Year
  Sex: Female

DRUGS (3)
  1. TEMODAL [Suspect]
     Active Substance: TEMOZOLOMIDE
     Dosage: 380 MG; 1 CYCLE
     Dates: start: 2020, end: 2020
  2. TEMODAL [Suspect]
     Active Substance: TEMOZOLOMIDE
     Dosage: 140 MG; 42 DOSES WERE PRESCRIBED AND COMPLETED 36
  3. TEMODAL [Suspect]
     Active Substance: TEMOZOLOMIDE
     Dosage: 280 MG; CYCLE OF 5 DOSES COMPLETED
     Dates: start: 2020, end: 2020

REACTIONS (8)
  - Neoplasm recurrence [Not Recovered/Not Resolved]
  - Anosmia [Not Recovered/Not Resolved]
  - Diabetes insipidus [Not Recovered/Not Resolved]
  - Nausea [Not Recovered/Not Resolved]
  - Thrombocytopenia [Not Recovered/Not Resolved]
  - Vomiting [Not Recovered/Not Resolved]
  - Thrombocytopenia [Recovered/Resolved]
  - Alanine aminotransferase increased [Not Recovered/Not Resolved]

NARRATIVE: CASE EVENT DATE: 2020
